FAERS Safety Report 8218883-6 (Version None)
Quarter: 2012Q1

REPORT INFORMATION
  Report Type: 
  Country: None (occurrence: None)
  Receive Date: 20120319
  Receipt Date: 20120315
  Transmission Date: 20120608
  Serious: Yes (Death, Hospitalization, Other)
  Sender: FDA-Public Use
  Company Number: PHHY2012ES020538

PATIENT
  Age: 70 Year
  Sex: Male

DRUGS (4)
  1. AEROSOLS [Concomitant]
  2. ENALAPRIL [Concomitant]
     Dosage: 20 MG, DAILY
     Route: 048
  3. AFINITOR [Suspect]
     Indication: NEUROENDOCRINE TUMOUR
     Dosage: 10 MG, DAILY
     Route: 048
     Dates: start: 20111019, end: 20111022
  4. SOMATULINE DEPOT [Concomitant]
     Dosage: 120 MG, QMO

REACTIONS (7)
  - DISORIENTATION [None]
  - COMA [None]
  - GENERAL PHYSICAL HEALTH DETERIORATION [None]
  - ENCEPHALOPATHY [None]
  - RENAL FAILURE ACUTE [None]
  - CONFUSIONAL STATE [None]
  - METABOLIC ACIDOSIS [None]
